FAERS Safety Report 6749657-0 (Version None)
Quarter: 2010Q2

REPORT INFORMATION
  Report Type: 
  Country: None (occurrence: None)
  Receive Date: 20100601
  Receipt Date: 20100524
  Transmission Date: 20101027
  Serious: Yes (Other)
  Sender: FDA-Public Use
  Company Number: B0656920A

PATIENT
  Age: 78 Year
  Sex: Male
  Weight: 76.2 kg

DRUGS (1)
  1. FLIXONASE [Suspect]
     Indication: NASAL CONGESTION
     Dosage: 2IUAX PER DAY
     Route: 045
     Dates: start: 20100505, end: 20100511

REACTIONS (1)
  - FEELING HOT [None]
